FAERS Safety Report 9269055 (Version 3)
Quarter: 2013Q3

REPORT INFORMATION
  Report Type: Spontaneous
  Country: US (occurrence: US)
  Receive Date: 20130503
  Receipt Date: 20130722
  Transmission Date: 20140515
  Serious: Yes (Other)
  Sender: FDA-Public Use
  Company Number: US-AMGEN-USASP2013029713

PATIENT
  Age: 42 Year
  Sex: Female
  Weight: 43.08 kg

DRUGS (6)
  1. PROLIA [Suspect]
     Indication: OSTEOPOROSIS
     Dosage: 60 MG, ONE TIME DOSE
     Route: 058
     Dates: start: 20120524, end: 20120524
  2. NEORAL [Concomitant]
     Indication: TRANSPLANT
     Dosage: 100 MG, QD
     Route: 048
  3. CELLCEPT                           /01275102/ [Concomitant]
     Indication: TRANSPLANT
     Dosage: 500 MG, Q2H
     Route: 048
  4. PREDNISONE [Concomitant]
     Indication: TRANSPLANT
     Dosage: 5 MG, QD
     Route: 048
  5. ZEMPLAR [Concomitant]
     Indication: HYPERPARATHYROIDISM
     Dosage: 2 MG, Q3WK
     Route: 048
  6. MAG-OX [Concomitant]

REACTIONS (6)
  - Hypocalcaemia [Recovered/Resolved]
  - Diarrhoea [Unknown]
  - Paraesthesia [Unknown]
  - Fatigue [Unknown]
  - Hypoaesthesia oral [Unknown]
  - Muscle spasms [Unknown]
